FAERS Safety Report 8073753-1 (Version None)
Quarter: 2012Q1

REPORT INFORMATION
  Report Type: 
  Country: None (occurrence: None)
  Receive Date: 20120126
  Receipt Date: 20120119
  Transmission Date: 20120608
  Serious: Yes (Hospitalization, Other)
  Sender: FDA-Public Use
  Company Number: US-ROCHE-791207

PATIENT
  Sex: Male

DRUGS (1)
  1. ACCUTANE [Suspect]
     Indication: ACNE
     Route: 065
     Dates: start: 19890901, end: 19900401

REACTIONS (7)
  - SMALL INTESTINAL OBSTRUCTION [None]
  - DEPRESSION [None]
  - CROHN'S DISEASE [None]
  - ANXIETY [None]
  - INFLAMMATORY BOWEL DISEASE [None]
  - COLITIS ULCERATIVE [None]
  - SUICIDAL IDEATION [None]
